FAERS Safety Report 19958670 (Version 1)
Quarter: 2021Q4

REPORT INFORMATION
  Report Type: Spontaneous
  Country: US (occurrence: US)
  Receive Date: 20211012
  Receipt Date: 20211012
  Transmission Date: 20220303
  Serious: Yes (Hospitalization, Other)
  Sender: FDA-Public Use
  Company Number: None

PATIENT
  Age: 80 Year
  Sex: Male
  Weight: 110 kg

DRUGS (1)
  1. MELOXICAM [Suspect]
     Active Substance: MELOXICAM
     Indication: Pain
     Route: 048
     Dates: start: 20210107, end: 20210614

REACTIONS (3)
  - Syncope [None]
  - Gastrointestinal haemorrhage [None]
  - Barrett^s oesophagus [None]

NARRATIVE: CASE EVENT DATE: 20210531
